FAERS Safety Report 8284320-9 (Version None)
Quarter: 2012Q2

REPORT INFORMATION
  Report Type: 
  Country: None (occurrence: None)
  Receive Date: 20120413
  Receipt Date: 20110713
  Transmission Date: 20120825
  Serious: No
  Sender: FDA-Public Use
  Company Number: US-ASTRAZENECA-2011SE42039

PATIENT
  Age: 22 Year
  Sex: Male

DRUGS (3)
  1. PRILOSEC [Suspect]
     Route: 048
  2. NEXIUM [Suspect]
     Indication: IMPAIRED GASTRIC EMPTYING
     Route: 048
     Dates: start: 20090101
  3. NEXIUM [Suspect]
     Route: 048

REACTIONS (3)
  - OFF LABEL USE [None]
  - IMPAIRED GASTRIC EMPTYING [None]
  - THERAPEUTIC RESPONSE UNEXPECTED [None]
